FAERS Safety Report 5410918-9 (Version None)
Quarter: 2007Q3

REPORT INFORMATION
  Report Type: 
  Country: None (occurrence: None)
  Receive Date: 20070809
  Receipt Date: 20070809
  Transmission Date: 20080115
  Serious: Yes (Death)
  Sender: FDA-Public Use
  Company Number: None

PATIENT
  Age: 61 Year
  Sex: Male
  Weight: 134 kg

DRUGS (2)
  1. LOVENOX [Suspect]
     Indication: ACUTE CORONARY SYNDROME
     Dosage: 140 MG Q12H SQ
     Route: 058
     Dates: start: 20070703, end: 20070704
  2. INTEGRILIN [Suspect]
     Indication: PERCUTANEOUS CORONARY INTERVENTION
     Dosage: 2MCG/KG/MIN Q5H IV DRIP
     Route: 041
     Dates: start: 20070703, end: 20070704

REACTIONS (2)
  - INCORRECT DOSE ADMINISTERED [None]
  - RETROPERITONEAL HAEMORRHAGE [None]
